FAERS Safety Report 4508010-0 (Version None)
Quarter: 2004Q4

REPORT INFORMATION
  Report Type: 
  Country: None (occurrence: None)
  Receive Date: 20041122
  Receipt Date: 20041122
  Transmission Date: 20050328
  Serious: Yes (Hospitalization)
  Sender: FDA-Public Use
  Company Number: None

PATIENT
  Age: 48 Year
  Sex: Female
  Weight: 72 kg

DRUGS (15)
  1. ZOCOR [Suspect]
     Indication: HYPERLIPIDAEMIA
     Dosage: 20MG  DAILY ORAL
     Route: 048
  2. LEXAPRO [Concomitant]
  3. HUMULIN N [Concomitant]
  4. NEURONTIN [Concomitant]
  5. FERROUS SULFATE TAB [Concomitant]
  6. MAGNESIUM OXIDE [Concomitant]
  7. ATENOLOL [Concomitant]
  8. PROTONIX [Concomitant]
  9. VALIUM [Concomitant]
  10. PLAVIX [Concomitant]
  11. HYDROCHLOROTHIAZIDE [Concomitant]
  12. POTASSIUM [Concomitant]
  13. CALAN [Concomitant]
  14. LISINOPRIL [Concomitant]
  15. NOALOG [Concomitant]

REACTIONS (2)
  - CHEST PAIN [None]
  - RHABDOMYOLYSIS [None]
